FAERS Safety Report 8993272 (Version 1)
Quarter: 2013Q1

REPORT INFORMATION
  Report Type: Spontaneous
  Country: US (occurrence: US)
  Receive Date: 20130102
  Receipt Date: 20130102
  Transmission Date: 20140127
  Serious: Yes (Hospitalization)
  Sender: FDA-Public Use
  Company Number: US-WATSON-2012-22910

PATIENT
  Age: 22 Year
  Sex: Female

DRUGS (3)
  1. ALBUTEROL SULFATE (AMALLC) [Suspect]
     Indication: ASTHMA
     Dosage: UNK, DAILY
     Route: 055
  2. FLUTICASONE PROPIONATE W/SALMETEROL XINAFOATE [Concomitant]
     Indication: ASTHMA
     Dosage: 250/50 MICROG
  3. MONTELUKAST [Concomitant]
     Indication: ASTHMA

REACTIONS (1)
  - Lactic acidosis [Recovered/Resolved]
